FAERS Safety Report 10070451 (Version 2)
Quarter: 2014Q2

REPORT INFORMATION
  Report Type: Spontaneous
  Country: JP (occurrence: JP)
  Receive Date: 20140410
  Receipt Date: 20140522
  Transmission Date: 20141212
  Serious: Yes (Disabling)
  Sender: FDA-Public Use
  Company Number: PHHY2014JP042949

PATIENT
  Age: 74 Year
  Sex: Female

DRUGS (3)
  1. LOCHOL [Suspect]
     Indication: HYPERCHOLESTEROLAEMIA
     Dosage: 10 YEARS AGO
  2. LOCHOL [Suspect]
     Dosage: UNK UKN, UNK
     Route: 048
     Dates: end: 20140317
  3. PLAVIX [Suspect]
     Dosage: UNK UKN, UNK
     Route: 048
     Dates: end: 20140328

REACTIONS (3)
  - Hepatic function abnormal [Recovered/Resolved]
  - Chromaturia [Unknown]
  - Malaise [Unknown]
